FAERS Safety Report 4584192-X (Version None)
Quarter: 2005Q1

REPORT INFORMATION
  Report Type: 
  Country: None (occurrence: None)
  Receive Date: 20050216
  Receipt Date: 20050125
  Transmission Date: 20050727
  Serious: Yes (Death)
  Sender: FDA-Public Use
  Company Number: US-GLAXOSMITHKLINE-A0542194A

PATIENT
  Sex: Male

DRUGS (4)
  1. ALBENZA [Suspect]
     Indication: NEUROCYSTICERCOSIS
     Dosage: 400MG WEEKLY
     Route: 048
     Dates: start: 20040901, end: 20041001
  2. KLONOPIN [Concomitant]
  3. UNKNOWN ANTIBIOTICS [Concomitant]
  4. UNKNOWN PAIN MEDICATION [Concomitant]

REACTIONS (2)
  - DEATH [None]
  - VOMITING [None]
